FAERS Safety Report 16007606 (Version 1)
Quarter: 2019Q1

REPORT INFORMATION
  Report Type: Spontaneous
  Country: US (occurrence: US)
  Receive Date: 20190226
  Receipt Date: 20190226
  Transmission Date: 20190418
  Serious: No
  Sender: FDA-Public Use
  Company Number: US-PERRIGO-18US011874

PATIENT
  Age: 42 Year
  Sex: Female
  Weight: 81.63 kg

DRUGS (1)
  1. NAPROXEN SODIUM. [Suspect]
     Active Substance: NAPROXEN SODIUM
     Indication: MIGRAINE
     Dosage: 1100 MG, PRN
     Route: 048
     Dates: start: 201809, end: 20181020

REACTIONS (2)
  - Drug ineffective for unapproved indication [Unknown]
  - Overdose [Recovered/Resolved]

NARRATIVE: CASE EVENT DATE: 201809
